FAERS Safety Report 7766904-7 (Version None)
Quarter: 2011Q3

REPORT INFORMATION
  Report Type: 
  Country: None (occurrence: None)
  Receive Date: 20110922
  Receipt Date: 20110916
  Transmission Date: 20111222
  Serious: No
  Sender: FDA-Public Use
  Company Number: US-PFIZER INC-2011220518

PATIENT
  Sex: Female

DRUGS (6)
  1. ADVIL [Suspect]
     Dosage: UNK
     Route: 048
  2. GABAPENTIN [Suspect]
     Indication: CONVULSION
     Dosage: 200 MG, DAILY
     Dates: start: 20110701, end: 20110801
  3. LORAZEPAM [Suspect]
     Indication: ANXIETY
     Dosage: UNK
  4. CALCIUM CARBONATE [Suspect]
     Dosage: UNK
  5. GABAPENTIN [Suspect]
     Indication: NEURALGIA
     Dosage: 100 MG, DAILY
     Route: 048
     Dates: start: 20110701, end: 20110701
  6. BACLOFEN [Suspect]
     Indication: MUSCLE RELAXANT THERAPY
     Dosage: UNK
     Route: 048

REACTIONS (8)
  - CONSTIPATION [None]
  - BACK PAIN [None]
  - DIZZINESS [None]
  - DRY MOUTH [None]
  - HEADACHE [None]
  - HYPOPNOEA [None]
  - FATIGUE [None]
  - NAUSEA [None]
